FAERS Safety Report 6423885-6 (Version None)
Quarter: 2009Q4

REPORT INFORMATION
  Report Type: 
  Country: None (occurrence: None)
  Receive Date: 20091030
  Receipt Date: 20091030
  Transmission Date: 20100525
  Serious: Yes (Hospitalization)
  Sender: FDA-Public Use
  Company Number: None

PATIENT
  Age: 53 Year
  Sex: Male
  Weight: 146.5 kg

DRUGS (2)
  1. RIBAVIRIN [Suspect]
     Indication: HEPATITIS C
     Dosage: 600 MG BID PO
     Route: 048
     Dates: start: 20090513, end: 20090608
  2. PEGINTERFERON [Suspect]
     Indication: HEPATITIS C
     Dosage: 150 MCG QWEEK SQ
     Route: 058
     Dates: start: 20090513, end: 20090608

REACTIONS (2)
  - PANCYTOPENIA [None]
  - RENAL FAILURE ACUTE [None]
